FAERS Safety Report 7960098-0 (Version None)
Quarter: 2011Q4

REPORT INFORMATION
  Report Type: 
  Country: None (occurrence: None)
  Receive Date: 20111201
  Receipt Date: 20111115
  Transmission Date: 20120403
  Serious: Yes (Death)
  Sender: FDA-Public Use
  Company Number: 08-205

PATIENT
  Age: 75 Year
  Sex: Male

DRUGS (8)
  1. ASPIRIN [Concomitant]
  2. FAZACLO ODT [Suspect]
     Dosage: 75 MG, QD HS, ORAL
     Route: 048
     Dates: start: 20080221, end: 20080605
  3. HALDOL [Concomitant]
  4. NAMENDA [Concomitant]
  5. LORAZEPAM [Concomitant]
  6. ARICEPT [Concomitant]
  7. ACETAMINOPHEN [Concomitant]
  8. CALCIUM CARBONATE [Concomitant]

REACTIONS (3)
  - ESSENTIAL HYPERTENSION [None]
  - ARTERIOSCLEROSIS CORONARY ARTERY [None]
  - ARTERIOSCLEROSIS [None]
